FAERS Safety Report 4744741-5 (Version None)
Quarter: 2005Q3

REPORT INFORMATION
  Report Type: 
  Country: None (occurrence: None)
  Receive Date: 20050815
  Receipt Date: 20050803
  Transmission Date: 20060218
  Serious: Yes (Other)
  Sender: FDA-Public Use
  Company Number: US-AMGEN-US145199

PATIENT
  Sex: Female

DRUGS (3)
  1. ENBREL [Suspect]
     Indication: PSORIASIS
     Dates: start: 20050301
  2. SORIATANE [Concomitant]
     Dates: start: 20050401, end: 20050803
  3. RAPTIVA [Concomitant]
     Dates: start: 20050101, end: 20050307

REACTIONS (2)
  - KIDNEY SMALL [None]
  - PROTEINURIA [None]
